FAERS Safety Report 16014816 (Version 2)
Quarter: 2019Q1

REPORT INFORMATION
  Report Type: Spontaneous
  Country: HU (occurrence: HU)
  Receive Date: 20190227
  Receipt Date: 20190313
  Transmission Date: 20190418
  Serious: Yes (Death, Hospitalization)
  Sender: FDA-Public Use
  Company Number: HU-ELI_LILLY_AND_COMPANY-HU201902011682

PATIENT
  Age: 60 Year
  Sex: Female

DRUGS (15)
  1. FOLIC ACID. [Concomitant]
     Active Substance: FOLIC ACID
  2. RILMENIDINE [Concomitant]
     Active Substance: RILMENIDINE
     Dosage: UNK UNK, BID
     Route: 065
  3. OLUMIANT [Suspect]
     Active Substance: BARICITINIB
     Indication: PRODUCT USED FOR UNKNOWN INDICATION
     Dosage: 4 MG, UNKNOWN
     Route: 065
     Dates: start: 20180821, end: 20190202
  4. CONTRAMAL [Concomitant]
     Active Substance: TRAMADOL HYDROCHLORIDE
  5. CALCIUM [Concomitant]
     Active Substance: CALCIUM
  6. VALSARTAN. [Concomitant]
     Active Substance: VALSARTAN
  7. VITAMIN D3 [Concomitant]
     Active Substance: CHOLECALCIFEROL
  8. TREXAN [METHOTREXATE SODIUM] [Concomitant]
     Dosage: 7.5 MG, WEEKLY (1/W)
     Route: 065
  9. METFOGAMMA [Concomitant]
     Active Substance: METFORMIN HYDROCHLORIDE
     Dosage: 100 MG, BID
     Route: 065
  10. LETROX [Concomitant]
     Active Substance: LEVOTHYROXINE SODIUM
     Dosage: 125 UG, DAILY
     Route: 065
  11. PAXIRAZOL [Concomitant]
     Dosage: UNK, TID
     Route: 065
  12. RABEPRAZOLE [Concomitant]
     Active Substance: RABEPRAZOLE
  13. FURON [FUROSEMIDE SODIUM] [Concomitant]
     Dosage: 40 MG, UNKNOWN
     Route: 065
  14. MEDROL [Concomitant]
     Active Substance: METHYLPREDNISOLONE
     Dosage: 4 MG, DAILY
     Route: 065
  15. GLICLADA [Concomitant]
     Active Substance: GLICLAZIDE
     Dosage: 30 MG, UNKNOWN
     Route: 065

REACTIONS (4)
  - Pyrexia [Recovering/Resolving]
  - Upper respiratory tract infection [Recovering/Resolving]
  - Myocardial infarction [Fatal]
  - Nausea [Recovering/Resolving]

NARRATIVE: CASE EVENT DATE: 20190207
